FAERS Safety Report 11005246 (Version 2)
Quarter: 2015Q2

REPORT INFORMATION
  Report Type: Spontaneous
  Country: JP (occurrence: JP)
  Receive Date: 20150409
  Receipt Date: 20150511
  Transmission Date: 20150821
  Serious: Yes (Hospitalization, Other)
  Sender: FDA-Public Use
  Company Number: JP-ACTAVIS-2015-05750

PATIENT
  Age: 11 Month
  Sex: Male

DRUGS (3)
  1. URSO [Suspect]
     Active Substance: URSODIOL
     Dosage: 60 MG, DAILY
     Route: 048
  2. URSO [Suspect]
     Active Substance: URSODIOL
     Indication: CHOLELITHIASIS
     Dosage: 40 MG, BID
     Route: 048
     Dates: start: 20130220, end: 20130221
  3. BUSCOPAN [Suspect]
     Active Substance: BUTYLSCOPOLAMINE BROMIDE
     Indication: CHOLELITHIASIS
     Dosage: 5 MG, BID
     Route: 048
     Dates: start: 20130220, end: 20130221

REACTIONS (5)
  - Bile duct obstruction [Recovered/Resolved]
  - Pancreatitis acute [Recovered/Resolved]
  - Vomiting [Recovered/Resolved]
  - Aggression [Recovered/Resolved]
  - Poor sucking reflex [Recovered/Resolved]
